FAERS Safety Report 10058464 (Version 2)
Quarter: 2014Q2

REPORT INFORMATION
  Report Type: Spontaneous
  Country: GB (occurrence: None)
  Receive Date: 20140402
  Receipt Date: 20140414
  Transmission Date: 20141212
  Serious: Yes (Death, Hospitalization)
  Sender: FDA-Public Use
  Company Number: 2266591

PATIENT
  Sex: Male

DRUGS (3)
  1. MEROPENEM [Suspect]
     Indication: ENTEROBACTER INFECTION
     Route: 042
  2. COLISTIN [Suspect]
     Indication: ENTEROBACTER INFECTION
  3. TIGECYCLINE [Suspect]
     Indication: ENTEROBACTER INFECTION

REACTIONS (1)
  - Enterobacter infection [None]
